FAERS Safety Report 10156775 (Version 1)
Quarter: 2014Q2

REPORT INFORMATION
  Report Type: Spontaneous
  Country: US (occurrence: US)
  Receive Date: 20140507
  Receipt Date: 20140507
  Transmission Date: 20141212
  Serious: No
  Sender: FDA-Public Use
  Company Number: US-009507513-1405USA002981

PATIENT
  Sex: Female

DRUGS (3)
  1. REBETOL [Suspect]
     Indication: HEPATITIS C
     Dosage: 9 PILLS, DAILY
     Route: 048
     Dates: start: 2014
  2. REBETOL [Suspect]
     Dosage: 6 PILLS, DAILY
     Route: 048
     Dates: start: 2014
  3. SOFOSBUVIR [Concomitant]

REACTIONS (2)
  - Fatigue [Recovering/Resolving]
  - Memory impairment [Recovering/Resolving]
